FAERS Safety Report 21873777 (Version 1)
Quarter: 2023Q1

REPORT INFORMATION
  Report Type: Spontaneous
  Country: BE (occurrence: BE)
  Receive Date: 20230117
  Receipt Date: 20230117
  Transmission Date: 20230418
  Serious: Yes (Other)
  Sender: FDA-Public Use
  Company Number: None

PATIENT
  Age: 57 Year
  Sex: Female
  Weight: 95 kg

DRUGS (4)
  1. PREGABALIN [Suspect]
     Active Substance: PREGABALIN
     Indication: Neuralgia
     Dosage: 1 DOSAGE FORM, QD (1 IN THE EVENING AROUND 8 PM)
     Route: 048
     Dates: start: 201907
  2. PIROXICAM BETADEX [Concomitant]
     Active Substance: PIROXICAM BETADEX
     Dosage: 3 DOSAGE FORM, QW (1 TAB EVERY TWO TO THREE DAYS)
     Route: 065
  3. Belsar [Concomitant]
     Dosage: 1 DOSAGE FORM, QD
     Route: 065
  4. ALPRAZOLAM [Concomitant]
     Active Substance: ALPRAZOLAM
     Dosage: 0.5 DOSAGE FORM, QD
     Route: 065

REACTIONS (9)
  - Eye haematoma [Recovering/Resolving]
  - Skin exfoliation [Recovering/Resolving]
  - Eczema eyelids [Recovering/Resolving]
  - Pollakiuria [Recovering/Resolving]
  - Eczema [Recovering/Resolving]
  - Generalised oedema [Recovering/Resolving]
  - Parosmia [Recovering/Resolving]
  - Dry eye [Recovering/Resolving]
  - Vision blurred [Recovering/Resolving]

NARRATIVE: CASE EVENT DATE: 20190801
